FAERS Safety Report 20124729 (Version 3)
Quarter: 2022Q1

REPORT INFORMATION
  Report Type: Spontaneous
  Country: JP (occurrence: JP)
  Receive Date: 20211129
  Receipt Date: 20220119
  Transmission Date: 20220423
  Serious: Yes (Death, Life-Threatening, Hospitalization, Other)
  Sender: FDA-Public Use
  Company Number: JP-BRISTOL-MYERS SQUIBB COMPANY-BMS-2021-048734

PATIENT
  Age: 85 Year
  Sex: Female
  Weight: 35 kg

DRUGS (7)
  1. SPRYCEL [Suspect]
     Active Substance: DASATINIB
     Indication: Acute lymphocytic leukaemia
     Dosage: 100 MILLIGRAM, BID
     Route: 048
     Dates: start: 20210402, end: 20210927
  2. ETOPOSIDE [Suspect]
     Active Substance: ETOPOSIDE
     Indication: Product used for unknown indication
     Dosage: UNK
     Route: 065
  3. AMLODIPINE [Concomitant]
     Active Substance: AMLODIPINE BESYLATE
     Indication: Hypertension
     Dosage: 5 MILLIGRAM, QD
     Route: 048
     Dates: end: 20210927
  4. ROSUVASTATIN [Concomitant]
     Active Substance: ROSUVASTATIN
     Indication: Lipid metabolism disorder
     Dosage: 2.5 MILLIGRAM, QD
     Route: 048
     Dates: end: 20210927
  5. LANSOPRAZOLE [Concomitant]
     Active Substance: LANSOPRAZOLE
     Indication: Gastrooesophageal reflux disease
     Dosage: 5 MILLIGRAM, QD
     Route: 048
     Dates: end: 20210927
  6. FLUCONAZOLE [Concomitant]
     Active Substance: FLUCONAZOLE
     Indication: Prophylaxis
     Dosage: 200 MILLIGRAM, QD
     Route: 048
     Dates: end: 20210927
  7. SULFAMETHOXAZOLE\TRIMETHOPRIM [Concomitant]
     Active Substance: SULFAMETHOXAZOLE\TRIMETHOPRIM
     Indication: Prophylaxis
     Dosage: UNK, QD
     Route: 048
     Dates: end: 20210927

REACTIONS (8)
  - Pneumonia aspiration [Fatal]
  - Myocardial ischaemia [Fatal]
  - Sepsis [Recovered/Resolved]
  - Compression fracture [Recovered/Resolved]
  - Febrile neutropenia [Recovered/Resolved]
  - Femoral neck fracture [Recovered/Resolved]
  - Ascites [Unknown]
  - Pleural effusion [Recovered/Resolved]

NARRATIVE: CASE EVENT DATE: 20210428
